FAERS Safety Report 20452433 (Version 2)
Quarter: 2022Q1

REPORT INFORMATION
  Report Type: Other
  Country: CA (occurrence: None)
  Receive Date: 20220210
  Receipt Date: 20220211
  Transmission Date: 20220424
  Serious: Yes (Other)
  Sender: FDA-Public Use
  Company Number: CA-ROCHE-2956640

PATIENT
  Sex: Female
  Weight: 70 kg

DRUGS (6)
  1. HERCEPTIN [Suspect]
     Active Substance: TRASTUZUMAB
     Indication: Breast cancer
     Dosage: DRUG DOSE FIRST ADMINISTERED IS 417 MG MILLIGRAM(S)
     Route: 042
     Dates: start: 20210521
  2. PERJETA [Suspect]
     Active Substance: PERTUZUMAB
     Indication: Breast cancer
     Dosage: DRUG DOSE FIRST ADMINISTERED IS 840 MG MILLIGRAM(S)
     Route: 042
     Dates: start: 20210521, end: 20210521
  3. PERJETA [Suspect]
     Active Substance: PERTUZUMAB
     Dosage: DRUG DOSE FIRST ADMINISTERED IS 420 MG MILLIGRAM(S)
     Route: 042
     Dates: start: 20210521, end: 20210521
  4. ACETAMINOPHEN [Concomitant]
     Active Substance: ACETAMINOPHEN
     Indication: Premedication
     Dosage: DRUG DOSE FIRST ADMINISTERED IS 1000 MG MILLIGRAM(S)
     Route: 048
     Dates: start: 20210521, end: 2021
  5. ACETAMINOPHEN [Concomitant]
     Active Substance: ACETAMINOPHEN
     Dosage: DRUG DOSE FIRST ADMINISTERED IS 650 MG MILLIGRAM(S)
     Route: 048
     Dates: start: 20210611
  6. BENADRYL [Concomitant]
     Active Substance: DIPHENHYDRAMINE HYDROCHLORIDE
     Indication: Premedication
     Dosage: DRUG DOSE FIRST ADMINISTERED IS 50 MG MILLIGRAM(S)
     Route: 042
     Dates: start: 20210521

REACTIONS (5)
  - Weight decreased [Not Recovered/Not Resolved]
  - Diabetes mellitus [Unknown]
  - Cystitis [Unknown]
  - Neuralgia [Unknown]
  - Weight increased [Unknown]
